FAERS Safety Report 4283071-5 (Version None)
Quarter: 2004Q1

REPORT INFORMATION
  Report Type: 
  Country: None (occurrence: None)
  Receive Date: 20040129
  Receipt Date: 20040120
  Transmission Date: 20041129
  Serious: Yes (Death, Hospitalization)
  Sender: FDA-Public Use
  Company Number: 03P-163-0243398-00

PATIENT
  Age: 91 Year
  Sex: Female

DRUGS (2)
  1. BIAXIN [Suspect]
     Indication: INFECTION
     Dosage: 250 MG, 1 IN 1 D, PER ORAL
     Route: 048
  2. RAMIPRIL [Concomitant]

REACTIONS (2)
  - CARDIAC ARREST [None]
  - HYPERTENSION [None]
